FAERS Safety Report 6301556-4 (Version None)
Quarter: 2009Q3

REPORT INFORMATION
  Report Type: 
  Country: None (occurrence: None)
  Receive Date: 20090807
  Receipt Date: 20090729
  Transmission Date: 20100115
  Serious: Yes (Death)
  Sender: FDA-Public Use
  Company Number: IR-NOVOPROD-289923

PATIENT
  Age: 83 Year
  Sex: Female
  Weight: 55 kg

DRUGS (4)
  1. INSULATARD PENFILL [Suspect]
     Indication: DIABETES MELLITUS
     Dosage: 25 IU, QD
     Route: 058
     Dates: start: 20090501, end: 20090702
  2. LOZAR [Concomitant]
     Dosage: 25 MG, BID
     Route: 048
     Dates: start: 19970101, end: 20090702
  3. ASPIRIN [Concomitant]
     Dosage: 80 MG, QD
     Route: 048
     Dates: start: 19950101, end: 20090702
  4. CARVEDILOL [Concomitant]
     Dosage: UNK, UNK
     Route: 048
     Dates: start: 19970101, end: 20090702

REACTIONS (1)
  - CARDIAC ARREST [None]
